FAERS Safety Report 5520074-4 (Version None)
Quarter: 2007Q4

REPORT INFORMATION
  Report Type: 
  Country: None (occurrence: None)
  Receive Date: 20071116
  Receipt Date: 20071113
  Transmission Date: 20080405
  Serious: Yes (Other)
  Sender: FDA-Public Use
  Company Number: US-SHR-US-2006-020239

PATIENT
  Age: 16 Year
  Sex: Female

DRUGS (4)
  1. BETASERON [Suspect]
     Dosage: 4 MIU, 2X/WEEK
     Route: 058
     Dates: start: 20060726, end: 20060808
  2. BETASERON [Suspect]
     Dosage: 6 MIU, 2X/WEEK
     Route: 058
     Dates: start: 20060809, end: 20060822
  3. BETASERON [Suspect]
     Dosage: 8 MIU, 2X/WEEK
     Route: 058
     Dates: start: 20060823
  4. BETASERON [Suspect]
     Dosage: 2 MIU, 2X/WEEK
     Route: 058
     Dates: start: 20060712, end: 20060725

REACTIONS (2)
  - FATIGUE [None]
  - MULTIPLE SCLEROSIS [None]
